FAERS Safety Report 8822415 (Version 1)
Quarter: 2012Q4

REPORT INFORMATION
  Report Type: 
  Country: FR (occurrence: FR)
  Receive Date: 20121003
  Receipt Date: 20121003
  Transmission Date: 20130627
  Serious: Yes (Hospitalization)
  Sender: FDA-Public Use
  Company Number: FR-JNJFOC-20120511978

PATIENT
  Age: 90 Year
  Sex: Male
  Weight: 64 kg

DRUGS (2)
  1. IXPRIM [Suspect]
     Indication: BACK PAIN
     Route: 048
     Dates: start: 201006, end: 20120410
  2. DOLIPRANE [Concomitant]
     Indication: BACK PAIN
     Route: 048

REACTIONS (10)
  - Shock [Recovered/Resolved]
  - Tachyarrhythmia [Recovered/Resolved]
  - Subendocardial ischaemia [Recovered/Resolved]
  - Ventricular tachycardia [Recovered/Resolved]
  - Abdominal pain [Unknown]
  - Feeling abnormal [Recovered/Resolved]
  - Abnormal behaviour [Recovered/Resolved]
  - Palpitations [Recovered/Resolved]
  - Confusional state [Recovered/Resolved]
  - Vertigo [Recovered/Resolved]
